FAERS Safety Report 7717564-2 (Version None)
Quarter: 2011Q3

REPORT INFORMATION
  Report Type: 
  Country: None (occurrence: None)
  Receive Date: 20110824
  Receipt Date: 20110801
  Transmission Date: 20111222
  Serious: Yes (Death, Hospitalization)
  Sender: FDA-Public Use
  Company Number: UTC-009434

PATIENT
  Age: 56 Year
  Sex: Female
  Weight: 52.27 kg

DRUGS (2)
  1. TYVASO [Suspect]
     Indication: PULMONARY ARTERIAL HYPERTENSION
     Dosage: 144 MCG (36 MCG, 4 IN 1D), INHALATION
     Route: 055
     Dates: start: 20110527
  2. TYVASO [Suspect]
     Dosage: 48 MCG (12 MCG, 4 IN 1 D) INHALATION POSITIVE POSITIVE
     Route: 055
     Dates: start: 20110801

REACTIONS (2)
  - ARRHYTHMIA [None]
  - DIZZINESS [None]
